FAERS Safety Report 13359673 (Version 2)
Quarter: 2017Q2

REPORT INFORMATION
  Report Type: Spontaneous
  Country: FR (occurrence: FR)
  Receive Date: 20170322
  Receipt Date: 20170418
  Transmission Date: 20170830
  Serious: Yes (Hospitalization, Other)
  Sender: FDA-Public Use
  Company Number: FR-009507513-1703FRA009154

PATIENT
  Age: 74 Year
  Sex: Male
  Weight: 95 kg

DRUGS (7)
  1. LIPTRUZET [Suspect]
     Active Substance: ATORVASTATIN CALCIUM\EZETIMIBE
     Dosage: UNK
     Route: 048
     Dates: start: 20160113, end: 201606
  2. TENORMIN [Concomitant]
     Active Substance: ATENOLOL
     Dosage: 2 DF, QD
     Dates: start: 2011
  3. LEVOTHYROXINE SODIUM. [Concomitant]
     Active Substance: LEVOTHYROXINE SODIUM
     Dosage: UNK
     Dates: start: 201605, end: 20160620
  4. PLAVIX [Concomitant]
     Active Substance: CLOPIDOGREL BISULFATE
     Dosage: 1 DF, QD
     Dates: start: 2011
  5. ALLOPURINOL. [Concomitant]
     Active Substance: ALLOPURINOL
     Dosage: UNK
     Dates: end: 201604
  6. COVERAM [Concomitant]
     Active Substance: AMLODIPINE\PERINDOPRIL
     Dosage: 1 DF, QD
     Dates: start: 2011, end: 201606
  7. OGAST [Concomitant]
     Active Substance: LANSOPRAZOLE
     Dosage: UNK

REACTIONS (3)
  - Acute kidney injury [Recovering/Resolving]
  - Muscle spasms [Unknown]
  - Chromaturia [Recovered/Resolved]

NARRATIVE: CASE EVENT DATE: 20160322
